FAERS Safety Report 6177075-5 (Version None)
Quarter: 2009Q2

REPORT INFORMATION
  Report Type: 
  Country: None (occurrence: None)
  Receive Date: 20090430
  Receipt Date: 20090430
  Transmission Date: 20091009
  Serious: Yes (Hospitalization)
  Sender: FDA-Public Use
  Company Number: None

PATIENT
  Sex: Female
  Weight: 49.8 kg

DRUGS (10)
  1. CYCLOPHOSPHAMIDE [Suspect]
     Dosage: 828 MG
  2. DOXIL [Suspect]
     Dosage: 48 MG
  3. NEULASTA [Suspect]
     Dosage: 6 MG
  4. RITUXIMAB (MOAB C2B8 ANTI CD20, CHIMERIC) [Suspect]
     Dosage: 518 MG
  5. VINCRISTINE SULFATE [Suspect]
     Dosage: 2 MG
  6. ASPIRIN [Concomitant]
  7. DARVON [Concomitant]
  8. METOPROLOL TARTRATE [Concomitant]
  9. PANTOPRAZOLE SODIUM [Concomitant]
  10. PRANDIN [Concomitant]

REACTIONS (4)
  - ACUTE CORONARY SYNDROME [None]
  - BLOOD CREATINE PHOSPHOKINASE MB INCREASED [None]
  - CONSTIPATION [None]
  - TROPONIN I INCREASED [None]
